FAERS Safety Report 10523163 (Version 1)
Quarter: 2014Q4

REPORT INFORMATION
  Report Type: Spontaneous
  Country: CA (occurrence: None)
  Receive Date: 20141010
  Receipt Date: 20141010
  Transmission Date: 20150528
  Serious: Yes (Other)
  Sender: FDA-Public Use
  Company Number: 2014-002974

PATIENT
  Age: 34 Year
  Sex: Female
  Weight: 91 kg

DRUGS (3)
  1. IMURAN [Suspect]
     Active Substance: AZATHIOPRINE
  2. REMICADE [Suspect]
     Active Substance: INFLIXIMAB
     Dosage: 400 MG, 1 EVERY 8 WEEKS, INTRAVENOUS
     Route: 042
  3. ASACOL [Suspect]
     Active Substance: MESALAMINE
     Route: 048

REACTIONS (1)
  - Weight increased [None]
